FAERS Safety Report 25209532 (Version 1)
Quarter: 2025Q2

REPORT INFORMATION
  Report Type: Spontaneous
  Country: US (occurrence: US)
  Receive Date: 20250417
  Receipt Date: 20250417
  Transmission Date: 20250717
  Serious: No
  Sender: SANOFI AVENTIS
  Company Number: US-SA-2025SA110789

PATIENT
  Age: 58 Year
  Sex: Male

DRUGS (1)
  1. DUPIXENT [Suspect]
     Active Substance: DUPILUMAB
     Indication: Eczema
     Dosage: 300 MG, QOW
     Route: 058
     Dates: start: 202412

REACTIONS (10)
  - Eczema [Unknown]
  - Hyperaesthesia [Recovered/Resolved]
  - Influenza [Unknown]
  - Cough [Unknown]
  - Pyrexia [Unknown]
  - Condition aggravated [Unknown]
  - Ocular cyst [Recovered/Resolved]
  - Product dose omission issue [Unknown]
  - Pruritus [Unknown]
  - Rash [Recovered/Resolved]

NARRATIVE: CASE EVENT DATE: 20250101
